FAERS Safety Report 4762599-5 (Version None)
Quarter: 2005Q3

REPORT INFORMATION
  Report Type: 
  Country: None (occurrence: None)
  Receive Date: 20050907
  Receipt Date: 20050831
  Transmission Date: 20060218
  Serious: Yes (Hospitalization)
  Sender: FDA-Public Use
  Company Number: US-GLAXOSMITHKLINE-A0572546A

PATIENT
  Sex: Female

DRUGS (6)
  1. LAMICTAL [Suspect]
     Indication: MIGRAINE
     Dosage: 100MG PER DAY
     Route: 048
     Dates: start: 20050801, end: 20050825
  2. ZYRTEC [Concomitant]
  3. CALCIUM GLUCONATE [Concomitant]
  4. CENTRUM [Concomitant]
  5. THIAMINE HCL [Concomitant]
  6. ACIDOPHILUS [Concomitant]

REACTIONS (4)
  - DRUG INEFFECTIVE [None]
  - DYSPNOEA [None]
  - PRURITUS [None]
  - RASH [None]
